FAERS Safety Report 26007909 (Version 2)
Quarter: 2025Q4

REPORT INFORMATION
  Report Type: Report from Study
  Country: EU (occurrence: EU)
  Receive Date: 20251106
  Receipt Date: 20251211
  Transmission Date: 20260118
  Serious: Yes (Hospitalization)
  Sender: ABBVIE
  Company Number: EU-ABBVIE-6405330

PATIENT
  Age: 84 Year
  Sex: Male

DRUGS (4)
  1. FOSCARBIDOPA\FOSLEVODOPA [Suspect]
     Active Substance: FOSCARBIDOPA\FOSLEVODOPA
     Indication: Parkinson^s disease
     Dosage: CRN: 0.15 ML/H, CR: 0.19 ML/H, CRH: 0.23 ML/H, ED: 0.15 ML. ?LAST ADMIN DATE: 2025
     Route: 058
     Dates: start: 20250604
  2. FOSCARBIDOPA\FOSLEVODOPA [Suspect]
     Active Substance: FOSCARBIDOPA\FOSLEVODOPA
     Dosage: CRN: 0.15 ML/H, CR: 0.18 ML/H, CRH: 0.23 ML/H.
     Route: 058
     Dates: start: 2025, end: 2025
  3. FOSCARBIDOPA\FOSLEVODOPA [Suspect]
     Active Substance: FOSCARBIDOPA\FOSLEVODOPA
     Dosage: CRN: 0.15 ML/H, CR: 0.17 ML/H, CRH: 0.20 ML/H, ED 0.15 M
     Route: 058
     Dates: start: 2025, end: 2025
  4. FOSCARBIDOPA\FOSLEVODOPA [Suspect]
     Active Substance: FOSCARBIDOPA\FOSLEVODOPA
     Dosage: CRN: 0.15 ML/H, CR: 0.16 ML/H, CRH: 0M19 ML/H, ED: 0.15 ML
     Route: 058
     Dates: start: 2025

REACTIONS (4)
  - Bone contusion [Unknown]
  - Fall [Recovered/Resolved]
  - Hyperkinesia [Unknown]
  - Hypoaesthesia [Not Recovered/Not Resolved]

NARRATIVE: CASE EVENT DATE: 20250101
